FAERS Safety Report 8311206-3 (Version None)
Quarter: 2012Q2

REPORT INFORMATION
  Report Type: 
  Country: None (occurrence: None)
  Receive Date: 20120425
  Receipt Date: 20120418
  Transmission Date: 20120825
  Serious: Yes (Other)
  Sender: FDA-Public Use
  Company Number: DE-B.I. PHARMACEUTICALS,INC./RIDGEFIELD-2012-DE-00815DE

PATIENT
  Age: 75 Year
  Sex: Male
  Weight: 95 kg

DRUGS (3)
  1. PRADAXA [Suspect]
     Indication: ATRIAL FIBRILLATION
     Dosage: 300 MG
     Dates: start: 20110901
  2. CLOPIDOGREL [Concomitant]
     Indication: STENT PLACEMENT
  3. CLOPIDOGREL [Concomitant]
     Indication: CORONARY ARTERY DISEASE

REACTIONS (1)
  - CEREBROVASCULAR ACCIDENT [None]
